FAERS Safety Report 12887059 (Version 2)
Quarter: 2016Q4

REPORT INFORMATION
  Report Type: Report from Study
  Country: IL (occurrence: IL)
  Receive Date: 20161026
  Receipt Date: 20161110
  Transmission Date: 20170207
  Serious: Yes (Death, Hospitalization, Other)
  Sender: FDA-Public Use
  Company Number: IL-ACTELION-A-US2016-144562

PATIENT
  Age: 67 Year
  Sex: Male

DRUGS (10)
  1. PREDNISONE. [Concomitant]
     Active Substance: PREDNISONE
     Dosage: UNK
  2. SLOW-K [Concomitant]
     Active Substance: POTASSIUM CHLORIDE
     Dosage: UNK
  3. FAMOTIDINE. [Concomitant]
     Active Substance: FAMOTIDINE
     Dosage: UNK
  4. VENTAVIS [Suspect]
     Active Substance: ILOPROST
     Indication: PULMONARY HYPERTENSION
     Dosage: 5-6 INHALATIONS PER DAY
     Route: 055
     Dates: start: 20140819
  5. VENTAVIS [Suspect]
     Active Substance: ILOPROST
     Dosage: 6 INHALATIONS PER DAY
     Route: 055
     Dates: end: 20161016
  6. TRACLEER [Concomitant]
     Active Substance: BOSENTAN
     Dosage: UNK
  7. MOTILIUM [Concomitant]
     Active Substance: DOMPERIDONE
     Dosage: UNK
  8. PAXXET [Concomitant]
     Dosage: UNK
     Dates: start: 2012
  9. COLCHICINE. [Concomitant]
     Active Substance: COLCHICINE
     Dosage: UNK
  10. PREGAMAL [Concomitant]
     Dosage: UNK

REACTIONS (15)
  - Oedema peripheral [Recovering/Resolving]
  - Asthenia [Recovering/Resolving]
  - Product use issue [Not Recovered/Not Resolved]
  - Urinary tract infection [Unknown]
  - Inappropriate schedule of drug administration [Unknown]
  - Malaise [Unknown]
  - Death [Fatal]
  - General physical health deterioration [Unknown]
  - Hypersomnia [Unknown]
  - Haemoglobin decreased [Unknown]
  - Pyrexia [Not Recovered/Not Resolved]
  - Depression [Not Recovered/Not Resolved]
  - Influenza [Unknown]
  - Cardiac failure congestive [Recovering/Resolving]
  - Dysuria [Not Recovered/Not Resolved]

NARRATIVE: CASE EVENT DATE: 201503
